FAERS Safety Report 10059228 (Version 2)
Quarter: 2014Q2

REPORT INFORMATION
  Report Type: Spontaneous
  Country: US (occurrence: US)
  Receive Date: 20140404
  Receipt Date: 20140408
  Transmission Date: 20141212
  Serious: Yes (Other)
  Sender: FDA-Public Use
  Company Number: CHPA2014US004685

PATIENT
  Age: 74 Year
  Sex: Male

DRUGS (1)
  1. EXCEDRIN EXTRA STRENGTH [Suspect]
     Indication: BACK PAIN
     Dosage: UNK, 2-4 A DAY
     Route: 048

REACTIONS (2)
  - Bone pain [Recovered/Resolved]
  - Back pain [Unknown]
